FAERS Safety Report 9408442 (Version 1)
Quarter: 2013Q3

REPORT INFORMATION
  Report Type: Spontaneous
  Country: US (occurrence: US)
  Receive Date: 20130718
  Receipt Date: 20130718
  Transmission Date: 20140515
  Serious: No
  Sender: FDA-Public Use
  Company Number: US-BAUSCH-BL-2013-003077

PATIENT
  Age: 51 Year
  Sex: Female

DRUGS (3)
  1. LOTEMAX (LOTEPREDNOL ETABONATE OPHTHALMIC GEL 0.5%) [Suspect]
     Indication: EYE INFLAMMATION
     Dosage: 1 DROP; ONCE; OPHTHALMIC
     Route: 047
     Dates: start: 20130422, end: 20130422
  2. LOTEMAX (LOTEPREDNOL ETABONATE OPHTHALMIC GEL 0.5%) [Suspect]
     Indication: OFF LABEL USE
  3. ERGOCALCIFEROL/ASCORBIC ACID/FOLIC ACID/THIAMINE HYDROCHLORIDE/RETINOL/RIBOFLAVIN/NICOTINAMIDE/PANTH [Concomitant]

REACTIONS (1)
  - Dermatitis allergic [Unknown]
